FAERS Safety Report 24554906 (Version 3)
Quarter: 2024Q4

REPORT INFORMATION
  Report Type: Report from Study
  Country: US (occurrence: US)
  Receive Date: 20241028
  Receipt Date: 20241129
  Transmission Date: 20250114
  Serious: Yes (Hospitalization, Other)
  Sender: ALEXION PHARMACEUTICALS
  Company Number: US-ASTRAZENECA-202410USA015126US

PATIENT

DRUGS (59)
  1. FASENRA [Suspect]
     Active Substance: BENRALIZUMAB
     Indication: Asthma
     Dosage: 30 MILLIGRAM, Q4W
  2. FASENRA [Suspect]
     Active Substance: BENRALIZUMAB
     Dosage: 30 MILLIGRAM, Q4W
  3. FASENRA [Suspect]
     Active Substance: BENRALIZUMAB
     Dosage: 30 MILLIGRAM, Q4W
  4. FASENRA [Suspect]
     Active Substance: BENRALIZUMAB
     Dosage: 30 MILLIGRAM, Q4W
  5. METOPROLOL TARTRATE [Concomitant]
     Active Substance: METOPROLOL TARTRATE
  6. ALBUTEROL [Concomitant]
     Active Substance: ALBUTEROL
  7. ALBUTEROL [Concomitant]
     Active Substance: ALBUTEROL
  8. BENADRYL [Concomitant]
     Active Substance: DIPHENHYDRAMINE HYDROCHLORIDE
  9. BENADRYL [Concomitant]
     Active Substance: DIPHENHYDRAMINE HYDROCHLORIDE
     Route: 065
  10. BENZONATATE [Concomitant]
     Active Substance: BENZONATATE
  11. BENZONATATE [Concomitant]
     Active Substance: BENZONATATE
  12. CETIRIZINE [Concomitant]
     Active Substance: CETIRIZINE HYDROCHLORIDE
  13. CETIRIZINE [Concomitant]
     Active Substance: CETIRIZINE HYDROCHLORIDE
  14. DICLOFENAC [Concomitant]
     Active Substance: DICLOFENAC
  15. DICLOFENAC [Concomitant]
     Active Substance: DICLOFENAC
     Route: 065
  16. FLONASE [Concomitant]
     Active Substance: FLUTICASONE PROPIONATE
  17. FLONASE [Concomitant]
     Active Substance: FLUTICASONE PROPIONATE
     Route: 065
  18. FUROSEMIDE [Concomitant]
     Active Substance: FUROSEMIDE
  19. FUROSEMIDE [Concomitant]
     Active Substance: FUROSEMIDE
     Route: 065
  20. GLIPIZIDE [Concomitant]
     Active Substance: GLIPIZIDE
  21. GLIPIZIDE [Concomitant]
     Active Substance: GLIPIZIDE
     Route: 065
  22. JARDIANCE [Concomitant]
     Active Substance: EMPAGLIFLOZIN
  23. JARDIANCE [Concomitant]
     Active Substance: EMPAGLIFLOZIN
  24. LOSARTAN [Concomitant]
     Active Substance: LOSARTAN
  25. LOSARTAN [Concomitant]
     Active Substance: LOSARTAN
  26. MAGNESIUM [Concomitant]
     Active Substance: MAGNESIUM
  27. MAGNESIUM [Concomitant]
     Active Substance: MAGNESIUM
  28. METOPROLOL [Concomitant]
     Active Substance: METOPROLOL
  29. METOPROLOL [Concomitant]
     Active Substance: METOPROLOL
  30. MOTEGRITY [Concomitant]
     Active Substance: PRUCALOPRIDE SUCCINATE
  31. MOTEGRITY [Concomitant]
     Active Substance: PRUCALOPRIDE SUCCINATE
  32. NOVOLOG [Concomitant]
     Active Substance: INSULIN ASPART
  33. NOVOLOG [Concomitant]
     Active Substance: INSULIN ASPART
     Route: 065
  34. OMEPRAZOLE [Concomitant]
     Active Substance: OMEPRAZOLE
  35. OMEPRAZOLE [Concomitant]
     Active Substance: OMEPRAZOLE
  36. ONDANSETRON [Concomitant]
     Active Substance: ONDANSETRON
  37. ONDANSETRON [Concomitant]
     Active Substance: ONDANSETRON
     Route: 065
  38. OXYCODONE [Concomitant]
     Active Substance: OXYCODONE
  39. OXYCODONE [Concomitant]
     Active Substance: OXYCODONE
     Route: 065
  40. REGLAN [Concomitant]
     Active Substance: METOCLOPRAMIDE HYDROCHLORIDE
  41. REGLAN [Concomitant]
     Active Substance: METOCLOPRAMIDE HYDROCHLORIDE
     Route: 065
  42. ROBITUSSIN (GUAIFENESIN) [Concomitant]
     Active Substance: GUAIFENESIN
  43. ROBITUSSIN (GUAIFENESIN) [Concomitant]
     Active Substance: GUAIFENESIN
     Route: 065
  44. SINGULAIR [Concomitant]
     Active Substance: MONTELUKAST SODIUM
  45. SINGULAIR [Concomitant]
     Active Substance: MONTELUKAST SODIUM
     Route: 065
  46. SPIRIVA [Concomitant]
     Active Substance: TIOTROPIUM BROMIDE MONOHYDRATE
  47. SPIRIVA [Concomitant]
     Active Substance: TIOTROPIUM BROMIDE MONOHYDRATE
     Route: 065
  48. SYNTHROID [Concomitant]
     Active Substance: LEVOTHYROXINE SODIUM
  49. SYNTHROID [Concomitant]
     Active Substance: LEVOTHYROXINE SODIUM
     Route: 065
  50. TIZANIDINE [Concomitant]
     Active Substance: TIZANIDINE
  51. TIZANIDINE [Concomitant]
     Active Substance: TIZANIDINE
  52. TRINTELLIX [Concomitant]
     Active Substance: VORTIOXETINE HYDROBROMIDE
  53. TRINTELLIX [Concomitant]
     Active Substance: VORTIOXETINE HYDROBROMIDE
  54. VITAMIN B12 [Concomitant]
     Active Substance: CYANOCOBALAMIN
  55. VITAMIN B12 [Concomitant]
     Active Substance: CYANOCOBALAMIN
     Route: 065
  56. VITAMIN D [Concomitant]
     Active Substance: VITAMIN D NOS
  57. VITAMIN D [Concomitant]
     Active Substance: VITAMIN D NOS
     Route: 065
  58. ZYRTEC [Concomitant]
     Active Substance: CETIRIZINE HYDROCHLORIDE
  59. ZYRTEC [Concomitant]
     Active Substance: CETIRIZINE HYDROCHLORIDE
     Route: 065

REACTIONS (12)
  - Asthma [Unknown]
  - Oropharyngeal pain [Unknown]
  - Lung disorder [Unknown]
  - Cough [Unknown]
  - Bronchospasm [Unknown]
  - Bronchial hyperreactivity [Unknown]
  - Bronchial dysplasia [Unknown]
  - Depressed mood [Unknown]
  - Poor quality sleep [Unknown]
  - Decreased appetite [Unknown]
  - Disturbance in attention [Unknown]
  - Product dose omission in error [Unknown]
